FAERS Safety Report 5836443-9 (Version None)
Quarter: 2008Q3

REPORT INFORMATION
  Report Type: 
  Country: None (occurrence: None)
  Receive Date: 20080807
  Receipt Date: 20080729
  Transmission Date: 20090109
  Serious: Yes (Hospitalization, Other)
  Sender: FDA-Public Use
  Company Number: PHHY2008GB10505

PATIENT
  Sex: Male

DRUGS (1)
  1. CLOZARIL [Suspect]
     Indication: SCHIZOPHRENIA
     Dosage: UNK
     Route: 065
     Dates: start: 20080410

REACTIONS (21)
  - AGRANULOCYTOSIS [None]
  - ALANINE AMINOTRANSFERASE INCREASED [None]
  - ANISOCYTOSIS [None]
  - AORTIC DILATATION [None]
  - AORTIC WALL HYPERTROPHY [None]
  - BLOOD ALKALINE PHOSPHATASE INCREASED [None]
  - C-REACTIVE PROTEIN INCREASED [None]
  - DYSPNOEA [None]
  - HAEMOGLOBIN DECREASED [None]
  - LUNG DISORDER [None]
  - MEAN CELL HAEMOGLOBIN CONCENTRATION [None]
  - MEAN CELL HAEMOGLOBIN DECREASED [None]
  - NEUTROPENIA [None]
  - NEUTROPHIL COUNT DECREASED [None]
  - NEUTROPHIL TOXIC GRANULATION PRESENT [None]
  - NEUTROPHILIA [None]
  - PLATELET COUNT INCREASED [None]
  - POLYCHROMASIA [None]
  - PROTHROMBIN TIME PROLONGED [None]
  - RED CELL DISTRIBUTION WIDTH INCREASED [None]
  - WHITE BLOOD CELL COUNT INCREASED [None]
